FAERS Safety Report 7369802-6 (Version None)
Quarter: 2011Q1

REPORT INFORMATION
  Report Type: 
  Country: None (occurrence: None)
  Receive Date: 20110323
  Receipt Date: 20110310
  Transmission Date: 20110831
  Serious: Yes (Hospitalization, Other)
  Sender: FDA-Public Use
  Company Number: PL-BAYER-2011-022106

PATIENT
  Sex: Female
  Weight: 73 kg

DRUGS (17)
  1. EUTHYROX [Concomitant]
     Indication: POST PROCEDURAL HYPOTHYROIDISM
     Dosage: 200 UG
     Route: 048
     Dates: start: 20101217
  2. ALFADIOL [Concomitant]
     Indication: HYPOPARATHYROIDISM
     Dosage: 2 UG
     Route: 048
     Dates: start: 20091115
  3. PREDUCTAL [Concomitant]
     Indication: HYPERTENSION
     Dosage: 70 MG, QD
     Route: 048
     Dates: start: 20070101
  4. COSOPT [Concomitant]
     Indication: GLAUCOMA
     Dosage: 2 GTT, QD (EYE DROPS)
     Dates: start: 20101217
  5. CONCOR [Concomitant]
     Indication: HYPERTENSION
     Dosage: 1.25 MG, QD
     Route: 048
     Dates: start: 20101217
  6. SYLIMAROL [Concomitant]
     Indication: MEDICAL DIET
     Dosage: 70 MG, QD
     Route: 048
     Dates: start: 20090101
  7. MOLSIDOMINA [Concomitant]
     Indication: HYPERTENSION
     Dosage: 4 MG, QD
     Route: 048
     Dates: start: 20070101
  8. ACARD [Concomitant]
     Indication: HYPERTENSION
     Dosage: 75 MG, QD
     Route: 048
     Dates: start: 20050101
  9. SORAFENIB (RAF KINASE INHIBITOR) [Suspect]
     Indication: THYROID CANCER METASTATIC
     Dosage: 600 MG, QD
     Route: 048
     Dates: start: 20110310
  10. KALIPOZ-PROLONGATUM [Concomitant]
     Indication: HYPERTENSION
     Dosage: 0.391 G, QD
     Route: 048
     Dates: start: 20090101
  11. VALSARTAN [Concomitant]
     Indication: HYPERTENSION
     Dosage: 80 MG, QD
     Route: 048
     Dates: start: 20101207
  12. SALMETEROL [Concomitant]
     Indication: ASTHMA
     Dosage: 100 UG (INHALATION)
     Route: 055
     Dates: start: 20110211
  13. CALPEROS [Concomitant]
     Indication: HYPOPARATHYROIDISM
     Dosage: 4 G, QD
     Route: 048
     Dates: start: 20101208
  14. MAGNEZIN [Concomitant]
     Indication: HYPOPARATHYROIDISM
     Dosage: 10.4 G, QD
     Route: 048
     Dates: start: 20100101
  15. AMLODIPINE [Concomitant]
     Indication: HYPERTENSION
     Dosage: 2.5 MG, QD
     Route: 048
     Dates: start: 20110211
  16. PARACETAMOL [Concomitant]
     Indication: PAIN
     Dosage: 500 MG, QD
     Route: 048
     Dates: start: 20101004, end: 20101004
  17. PYRIDOXAL PHOSPHATE [Concomitant]
     Indication: PALMAR-PLANTAR ERYTHRODYSAESTHESIA SYNDROME
     Dosage: 200 MG, QD
     Route: 048
     Dates: start: 20101217

REACTIONS (1)
  - SYNCOPE [None]
